FAERS Safety Report 9412355 (Version 1)
Quarter: 2013Q3

REPORT INFORMATION
  Report Type: Spontaneous
  Country: None (occurrence: None)
  Receive Date: 20130708
  Receipt Date: 20130708
  Transmission Date: 20140515
  Serious: Yes (Hospitalization, Other)
  Sender: FDA-Public Use
  Company Number: AUR-APL-2009-00275

PATIENT
  Age: 45 Year
  Sex: Female

DRUGS (1)
  1. ALENDRONIC ACID [Suspect]
     Indication: OSTEOPOROSIS

REACTIONS (6)
  - Cough [None]
  - Wheezing [None]
  - Dyspnoea [None]
  - Rhonchi [None]
  - Tachycardia [None]
  - Asthma [None]
